FAERS Safety Report 10059546 (Version 1)
Quarter: 2014Q2

REPORT INFORMATION
  Report Type: Spontaneous
  Country: US (occurrence: US)
  Receive Date: 20140404
  Receipt Date: 20140404
  Transmission Date: 20141212
  Serious: Yes (Hospitalization, Other)
  Sender: FDA-Public Use
  Company Number: US-ACTAVIS-2014-06120

PATIENT
  Sex: Male
  Weight: 1.8 kg

DRUGS (2)
  1. BACLOFEN (WATSON LABORATORIES) [Suspect]
     Indication: MUSCLE SPASMS
     Dosage: 30 MG, TID
     Route: 064
  2. BETAMETHASONE [Concomitant]
     Indication: PRODUCT USED FOR UNKNOWN INDICATION
     Dosage: UNK
     Route: 064

REACTIONS (9)
  - Hypertonia neonatal [Recovered/Resolved]
  - Crying [Recovered/Resolved]
  - Tremor neonatal [Recovered/Resolved]
  - Hyperreflexia [Recovered/Resolved]
  - Sleep disorder [Recovered/Resolved]
  - Fever neonatal [Recovered/Resolved]
  - Diarrhoea neonatal [Recovered/Resolved]
  - Drug withdrawal syndrome neonatal [Recovered/Resolved]
  - Foetal exposure during pregnancy [Unknown]
